FAERS Safety Report 5442989-8 (Version None)
Quarter: 2007Q3

REPORT INFORMATION
  Report Type: 
  Country: None (occurrence: None)
  Receive Date: 20070905
  Receipt Date: 20070828
  Transmission Date: 20080115
  Serious: Yes (Other)
  Sender: FDA-Public Use
  Company Number: PHBS2007IT14476

PATIENT
  Age: 75 Year
  Sex: Female

DRUGS (4)
  1. CICLOPHOSPHAMIDE [Concomitant]
     Dosage: 600 MG, UNK
  2. METHOTREXATE [Concomitant]
     Dosage: 40 MG, UNK
  3. 1-(U-D-5-DEOSSIRIBOFURANOSIL-5-FLUOROURACILE [Concomitant]
     Dosage: 600 MG, UNK
  4. ZOMETA [Suspect]
     Indication: METASTASES TO BONE
     Dosage: 4 MG/EVERY 4 WKS
     Route: 042
     Dates: start: 20060301, end: 20070301

REACTIONS (3)
  - GINGIVAL OEDEMA [None]
  - ORAL PUSTULE [None]
  - OSTEONECROSIS [None]
